FAERS Safety Report 11195822 (Version 1)
Quarter: 2015Q2

REPORT INFORMATION
  Report Type: Spontaneous
  Country: US (occurrence: None)
  Receive Date: 20150615
  Receipt Date: 20150615
  Transmission Date: 20150821
  Serious: Yes (Other)
  Sender: FDA-Public Use
  Company Number: None

PATIENT
  Age: 42 Year
  Sex: Female
  Weight: 90.72 kg

DRUGS (4)
  1. POTASSIUM CITRATE. [Concomitant]
     Active Substance: POTASSIUM CITRATE
  2. PROBIOTICS [Concomitant]
     Active Substance: PROBIOTICS NOS
  3. HYDROCHLOROTHIAZIDE 25 MG [Suspect]
     Active Substance: HYDROCHLOROTHIAZIDE
     Dosage: 1 PILL
     Route: 048
     Dates: start: 20150603, end: 20150614
  4. AMLORIDE [Concomitant]

REACTIONS (7)
  - Peripheral swelling [None]
  - Rash [None]
  - Erythema [None]
  - Pruritus [None]
  - Feeling hot [None]
  - Burning sensation [None]
  - Sunburn [None]

NARRATIVE: CASE EVENT DATE: 20150614
